FAERS Safety Report 7122627-9 (Version None)
Quarter: 2010Q4

REPORT INFORMATION
  Report Type: 
  Country: None (occurrence: None)
  Receive Date: 20101124
  Receipt Date: 20101119
  Transmission Date: 20110411
  Serious: Yes (Hospitalization, Other)
  Sender: FDA-Public Use
  Company Number: US-PURDUE-USA-2008-0036003

PATIENT
  Sex: Male

DRUGS (7)
  1. OXYCONTIN [Suspect]
     Indication: PAIN
     Dosage: 10 MG, TID
  2. OXYCONTIN [Suspect]
     Indication: SPINAL LAMINECTOMY
     Dosage: 20 MG, Q12H
     Dates: start: 20050601
  3. OXYCONTIN [Suspect]
     Dosage: 40 MG, BID
     Dates: start: 20100415
  4. OXYCONTIN [Suspect]
     Dosage: 40 MG, Q8H
     Route: 048
     Dates: start: 19990101
  5. PERCOCET [Concomitant]
     Indication: BREAKTHROUGH PAIN
  6. DILAUDID [Concomitant]
     Dosage: 2 MG, SEE TEXT
  7. BENZODIAZEPINE DERIVATIVES [Concomitant]
     Indication: PRODUCT USED FOR UNKNOWN INDICATION

REACTIONS (18)
  - ANKLE FRACTURE [None]
  - ANKLE OPERATION [None]
  - CONVULSION [None]
  - DIARRHOEA [None]
  - DRUG INEFFECTIVE [None]
  - DRUG WITHDRAWAL SYNDROME [None]
  - FALL [None]
  - INADEQUATE ANALGESIA [None]
  - INTENTIONAL DRUG MISUSE [None]
  - LIGAMENT RUPTURE [None]
  - MEDICATION RESIDUE [None]
  - NAUSEA [None]
  - PAIN [None]
  - PRODUCT ODOUR ABNORMAL [None]
  - ROAD TRAFFIC ACCIDENT [None]
  - SPINAL FRACTURE [None]
  - SURGERY [None]
  - VOMITING [None]
